FAERS Safety Report 21421528 (Version 6)
Quarter: 2022Q4

REPORT INFORMATION
  Report Type: Report from Study
  Country: GR (occurrence: GR)
  Receive Date: 20221007
  Receipt Date: 20221222
  Transmission Date: 20230113
  Serious: Yes (Hospitalization, Other)
  Sender: FDA-Public Use
  Company Number: GR-ABBVIE-4143387

PATIENT
  Age: 54 Year
  Sex: Female
  Weight: 57 kg

DRUGS (10)
  1. CARBIDOPA\LEVODOPA [Suspect]
     Active Substance: CARBIDOPA\LEVODOPA
     Indication: Parkinson^s disease
     Dosage: MORNING DOSE: 10.1 ML; CONTINUOUS RATE: 3.8 ML/H; EXTRA DOSE: 2.9 ML (PUMP LOCK LL1)
     Route: 050
     Dates: start: 20210126
  2. CARBIDOPA\LEVODOPA [Suspect]
     Active Substance: CARBIDOPA\LEVODOPA
     Dosage: MORNING DOSE: 10.1 ML; CONTINUOUS RATE: 3.8 ML/H; EXTRA DOSE: 2.9 ML (PUMP LOCK LL1)
     Route: 050
  3. CARBIDOPA\LEVODOPA [Suspect]
     Active Substance: CARBIDOPA\LEVODOPA
     Dosage: MORNING DOSE: 10.1ML; CONTINUOUS RATE: 3.8ML/H; EXTRA DOSE: 2.9ML (PUMP LOCK LL1)
     Route: 050
  4. CARBIDOPA\LEVODOPA [Suspect]
     Active Substance: CARBIDOPA\LEVODOPA
     Dosage: MORNING DOSE: 10.1 ML; CONTINUOUS RATE: 3.8 ML/H; EXTRA DOSE: 2.9 ML (PUMP LOCK LL1)
     Route: 050
  5. CARBIDOPA\LEVODOPA [Suspect]
     Active Substance: CARBIDOPA\LEVODOPA
     Dosage: MORNING DOSE: 10.1ML; CONTINUOUS RATE: 3.9ML/H; EXTRA DOSE: 2.9ML (PUMP LOCK LL1)
     Route: 050
  6. SYMMETREL [Concomitant]
     Active Substance: AMANTADINE HYDROCHLORIDE
     Indication: Product used for unknown indication
     Dosage: 1X1 IN THE MORNING
     Route: 048
  7. LYRICA [Concomitant]
     Active Substance: PREGABALIN
     Indication: Mental disorder
     Route: 048
  8. STALEVO [Concomitant]
     Active Substance: CARBIDOPA\ENTACAPONE\LEVODOPA
     Indication: Product used for unknown indication
     Route: 048
  9. ZOLOFT [Concomitant]
     Active Substance: SERTRALINE HYDROCHLORIDE
     Indication: Product used for unknown indication
     Route: 048
  10. PRAMIPEXOLE [Concomitant]
     Active Substance: PRAMIPEXOLE
     Indication: Product used for unknown indication
     Dosage: 0.7MG
     Route: 048

REACTIONS (10)
  - Cervix carcinoma [Not Recovered/Not Resolved]
  - Vomiting [Recovered/Resolved]
  - Vomiting [Not Recovered/Not Resolved]
  - Uterine cancer [Not Recovered/Not Resolved]
  - Asthenia [Recovered/Resolved]
  - Vomiting [Recovered/Resolved]
  - Mobility decreased [Recovered/Resolved]
  - Asthenia [Recovered/Resolved]
  - Vomiting [Recovered/Resolved]
  - Pain [Unknown]

NARRATIVE: CASE EVENT DATE: 20220801
